FAERS Safety Report 15272487 (Version 2)
Quarter: 2020Q4

REPORT INFORMATION
  Report Type: Spontaneous
  Country: US (occurrence: US)
  Receive Date: 20180813
  Receipt Date: 20201123
  Transmission Date: 20210113
  Serious: No
  Sender: FDA-Public Use
  Company Number: US-SA-2018SA221241

PATIENT

DRUGS (1)
  1. DUPIXENT [Suspect]
     Active Substance: DUPILUMAB
     Indication: DERMATITIS ATOPIC
     Dosage: 300 MG, QOW
     Route: 058
     Dates: start: 20180710

REACTIONS (3)
  - Injection site haemorrhage [Unknown]
  - Injection site oedema [Unknown]
  - Eye irritation [Unknown]

NARRATIVE: CASE EVENT DATE: 20180807
